FAERS Safety Report 8888916 (Version 1)
Quarter: 2012Q4

REPORT INFORMATION
  Report Type: 
  Country: US (occurrence: US)
  Receive Date: 20121106
  Receipt Date: 20121106
  Transmission Date: 20130627
  Serious: Yes (Hospitalization, Other)
  Sender: FDA-Public Use
  Company Number: US-ASTRAZENECA-2012SE25086

PATIENT
  Age: 80 Year
  Sex: Female

DRUGS (4)
  1. CRESTOR [Suspect]
     Route: 048
  2. CRESTOR [Suspect]
     Route: 048
  3. CRESTOR [Suspect]
     Route: 048
  4. FISH OIL [Concomitant]

REACTIONS (4)
  - Renal failure [Recovered/Resolved]
  - Rhabdomyolysis [Recovered/Resolved]
  - Myalgia [Recovered/Resolved]
  - Asthenia [Recovered/Resolved]
